FAERS Safety Report 8759702 (Version 6)
Quarter: 2013Q3

REPORT INFORMATION
  Report Type: Spontaneous
  Country: US (occurrence: US)
  Receive Date: 20120829
  Receipt Date: 20130814
  Transmission Date: 20140515
  Serious: Yes (Hospitalization)
  Sender: FDA-Public Use
  Company Number: US-B.I. PHARMACEUTICALS,INC./RIDGEFIELD-2012-BP-20328BP

PATIENT
  Age: 59 Year
  Sex: Male
  Weight: 154.22 kg

DRUGS (17)
  1. PRADAXA [Suspect]
     Indication: ATRIAL FLUTTER
     Dosage: 300 MG
     Route: 048
     Dates: start: 20120508, end: 20120509
  2. PRADAXA [Suspect]
     Indication: ATRIAL FIBRILLATION
  3. DIPHENHYDRAMINE [Concomitant]
     Dosage: 50 MG
     Route: 048
  4. TYLENOL PM [Concomitant]
     Route: 048
  5. VANTIN [Concomitant]
     Dosage: 400 MG
     Route: 048
     Dates: start: 20120308
  6. AMIODARONE [Concomitant]
     Indication: ATRIAL FLUTTER
     Dosage: 400 MG
     Route: 048
     Dates: start: 2012
  7. AMIODARONE [Concomitant]
     Indication: ATRIAL FIBRILLATION
  8. METOPROLOL TARTRATE [Concomitant]
     Dosage: 50 MG
     Route: 048
     Dates: start: 2012
  9. PRAVASTATIN [Concomitant]
     Dosage: 40 MG
     Route: 048
     Dates: start: 2012
  10. LASIX [Concomitant]
     Dosage: 20 MG
     Route: 048
     Dates: start: 2012
  11. POTASSIUM CHLORIDE [Concomitant]
     Dosage: 20 MEQ
     Route: 048
     Dates: start: 2012
  12. IMURAN [Concomitant]
  13. CEFTRIAXONE [Concomitant]
  14. VANCOMYCIN [Concomitant]
  15. BISCODYL [Concomitant]
  16. INSULIN [Concomitant]
  17. LISINOPRIL [Concomitant]
     Dates: start: 2012

REACTIONS (4)
  - Acute respiratory failure [Recovered/Resolved]
  - Pulmonary oedema [Recovered/Resolved]
  - Pulmonary haemorrhage [Not Recovered/Not Resolved]
  - Acute respiratory distress syndrome [Unknown]
